FAERS Safety Report 7496941-1 (Version None)
Quarter: 2011Q2

REPORT INFORMATION
  Report Type: 
  Country: None (occurrence: None)
  Receive Date: 20110523
  Receipt Date: 20110518
  Transmission Date: 20111010
  Serious: No
  Sender: FDA-Public Use
  Company Number: GB-MERCK-1104GBR00108

PATIENT
  Age: 76 Year
  Sex: Female

DRUGS (4)
  1. QUETIAPINE FUMARATE [Concomitant]
     Route: 065
  2. FOSAMAX [Suspect]
     Route: 048
     Dates: start: 20110101
  3. ASPIRIN [Concomitant]
     Route: 065
  4. LORAZEPAM [Concomitant]
     Route: 065

REACTIONS (1)
  - DYSPHAGIA [None]
